FAERS Safety Report 17879507 (Version 1)
Quarter: 2020Q2

REPORT INFORMATION
  Report Type: Spontaneous
  Country: FR (occurrence: FR)
  Receive Date: 20200610
  Receipt Date: 20200610
  Transmission Date: 20200714
  Serious: Yes (Other)
  Sender: FDA-Public Use
  Company Number: FR-ELI_LILLY_AND_COMPANY-FR202006000310

PATIENT
  Age: 65 Year
  Sex: Female
  Weight: 90 kg

DRUGS (3)
  1. TOUJEO [Interacting]
     Active Substance: INSULIN GLARGINE
     Indication: INSULIN-REQUIRING TYPE 2 DIABETES MELLITUS
     Dosage: 82 INTERNATIONAL UNIT, DAILY
     Route: 058
     Dates: end: 202005
  2. UMULINE [Suspect]
     Active Substance: INSULIN HUMAN
     Indication: PRODUCT DISPENSING ERROR
     Dosage: UNK UNK, UNKNOWN (UNKNOWN)
     Route: 058
     Dates: end: 202005
  3. UMULINE [Concomitant]
     Active Substance: INSULIN HUMAN
     Indication: INSULIN-REQUIRING TYPE 2 DIABETES MELLITUS
     Dosage: 106 INTERNATIONAL UNIT, UNKNOWN (NOT ADMINISTERED)
     Route: 058

REACTIONS (4)
  - Drug interaction [Unknown]
  - Off label use [Unknown]
  - Product dispensing error [Recovered/Resolved]
  - Hypoglycaemia [Recovered/Resolved]
